FAERS Safety Report 8132183-4 (Version None)
Quarter: 2012Q1

REPORT INFORMATION
  Report Type: 
  Country: None (occurrence: None)
  Receive Date: 20120213
  Receipt Date: 20120203
  Transmission Date: 20120608
  Serious: Yes (Death, Life-Threatening, Hospitalization, Other)
  Sender: FDA-Public Use
  Company Number: CN-PFIZER INC-2009183500

PATIENT
  Age: 52 Year
  Sex: Male
  Weight: 82 kg

DRUGS (9)
  1. KETOPROFEN [Concomitant]
  2. CETIRIZINE HYDROCHLORIDE [Concomitant]
     Indication: URTICARIA
     Dosage: 10 MG DAILY
  3. CETIRIZINE HYDROCHLORIDE [Concomitant]
     Indication: RASH MACULO-PAPULAR
  4. PREDNISOLONE [Concomitant]
     Indication: URTICARIA
     Dosage: 40 MG DAILY
  5. CELECOXIB [Suspect]
     Indication: CERVICAL ROOT PAIN
     Dosage: 200 MG, 1X/DAY
     Route: 048
     Dates: start: 20010330, end: 20010409
  6. CELECOXIB [Suspect]
     Indication: MUSCULOSKELETAL PAIN
  7. PREDNISOLONE [Concomitant]
     Indication: RASH MACULO-PAPULAR
  8. ACETAMINOPHEN [Concomitant]
     Dosage: UNK
     Route: 048
     Dates: start: 20010330, end: 20010409
  9. ULTRA-LEVURE [Concomitant]
     Dosage: UNK
     Route: 048
     Dates: start: 20010330, end: 20010409

REACTIONS (25)
  - DISSEMINATED INTRAVASCULAR COAGULATION [None]
  - RENAL FAILURE [None]
  - ENTEROCOLITIS [None]
  - PYREXIA [None]
  - THROMBOSIS [None]
  - LEUKOCYTOCLASTIC VASCULITIS [None]
  - SHOCK [None]
  - DIARRHOEA [None]
  - URTICARIA [None]
  - NECROTISING GASTRITIS [None]
  - TRACHEAL ULCER [None]
  - MULTI-ORGAN FAILURE [None]
  - HYPERLACTACIDAEMIA [None]
  - HYPERSENSITIVITY [None]
  - VASCULITIS NECROTISING [None]
  - RHABDOMYOLYSIS [None]
  - METABOLIC ACIDOSIS [None]
  - PANCREATITIS NECROTISING [None]
  - TOXIC EPIDERMAL NECROLYSIS [None]
  - RASH MACULO-PAPULAR [None]
  - ANGIOEDEMA [None]
  - CIRCULATORY COLLAPSE [None]
  - HAEMOLYSIS [None]
  - HYPERTHERMIA [None]
  - HEPATIC FAILURE [None]
